FAERS Safety Report 7551074-0 (Version None)
Quarter: 2011Q2

REPORT INFORMATION
  Report Type: 
  Country: None (occurrence: None)
  Receive Date: 20110616
  Receipt Date: 20110613
  Transmission Date: 20111010
  Serious: Yes (Death)
  Sender: FDA-Public Use
  Company Number: US-BRISTOL-MYERS SQUIBB COMPANY-15827298

PATIENT

DRUGS (1)
  1. YERVOY [Suspect]

REACTIONS (1)
  - PNEUMONITIS [None]
